FAERS Safety Report 16725141 (Version 2)
Quarter: 2019Q3

REPORT INFORMATION
  Report Type: Report from Study
  Country: TR (occurrence: TR)
  Receive Date: 20190821
  Receipt Date: 20190828
  Transmission Date: 20191005
  Serious: Yes (Hospitalization)
  Sender: FDA-Public Use
  Company Number: TR-EISAI MEDICAL RESEARCH-EC-2019-060916

PATIENT
  Age: 43 Year
  Sex: Female
  Weight: 91.2 kg

DRUGS (9)
  1. PEMBROLIZUMAB. [Suspect]
     Active Substance: PEMBROLIZUMAB
     Indication: ENDOMETRIAL CANCER
     Route: 041
     Dates: start: 20190802, end: 20190802
  2. CATAFLAM [Concomitant]
     Active Substance: DICLOFENAC POTASSIUM
     Dates: start: 201907
  3. GRANEXA [Concomitant]
     Dates: start: 201904
  4. LENVATINIB [Suspect]
     Active Substance: LENVATINIB
     Indication: ENDOMETRIAL CANCER
     Route: 048
     Dates: start: 20190802, end: 20190815
  5. OKSAPAR [Concomitant]
     Dates: start: 201903
  6. CONTRAMAL [Concomitant]
     Active Substance: TRAMADOL HYDROCHLORIDE
     Dates: start: 201907
  7. METPAMID [Concomitant]
     Active Substance: METOCLOPRAMIDE
     Dates: start: 201904
  8. GERALGINE [Concomitant]
     Dates: start: 201904
  9. PROZAC [Concomitant]
     Active Substance: FLUOXETINE HYDROCHLORIDE
     Dates: start: 201904

REACTIONS (2)
  - Cholecystitis [Not Recovered/Not Resolved]
  - Cholelithiasis [Not Recovered/Not Resolved]

NARRATIVE: CASE EVENT DATE: 20190815
